FAERS Safety Report 13668318 (Version 1)
Quarter: 2017Q2

REPORT INFORMATION
  Report Type: Report from Study
  Country: BR (occurrence: BR)
  Receive Date: 20170620
  Receipt Date: 20170620
  Transmission Date: 20170830
  Serious: Yes (Hospitalization, Other)
  Sender: FDA-Public Use
  Company Number: PHHY2017BR089181

PATIENT
  Sex: Male
  Weight: 50 kg

DRUGS (2)
  1. EXELON PATCH [Suspect]
     Active Substance: RIVASTIGMINE
     Indication: MEMORY IMPAIRMENT
  2. EXELON PATCH [Suspect]
     Active Substance: RIVASTIGMINE
     Indication: DEMENTIA ALZHEIMER^S TYPE
     Dosage: 4.6 MG, QD, PATCH (5 CM2)
     Route: 062

REACTIONS (10)
  - Hyponatraemia [Unknown]
  - Malaise [Unknown]
  - Agitation [Unknown]
  - Memory impairment [Unknown]
  - Abasia [Unknown]
  - Blood pressure decreased [Unknown]
  - Nervousness [Unknown]
  - Oropharyngeal discomfort [Unknown]
  - Weight decreased [Unknown]
  - Drooling [Unknown]
